FAERS Safety Report 18997609 (Version 3)
Quarter: 2021Q2

REPORT INFORMATION
  Report Type: Report from Study
  Country: JP (occurrence: JP)
  Receive Date: 20210311
  Receipt Date: 20210423
  Transmission Date: 20210717
  Serious: Yes (Death, Other)
  Sender: FDA-Public Use
  Company Number: JP-EISAI MEDICAL RESEARCH-EC-2021-089300

PATIENT
  Age: 72 Year
  Sex: Male
  Weight: 61 kg

DRUGS (1)
  1. LENVATINIB [Suspect]
     Active Substance: LENVATINIB
     Indication: ANAPLASTIC THYROID CANCER
     Route: 048
     Dates: start: 20180111, end: 20180131

REACTIONS (1)
  - Skin ulcer [Fatal]

NARRATIVE: CASE EVENT DATE: 20180131
